FAERS Safety Report 8501849-6 (Version None)
Quarter: 2012Q3

REPORT INFORMATION
  Report Type: 
  Country: None (occurrence: None)
  Receive Date: 20120711
  Receipt Date: 20120705
  Transmission Date: 20120928
  Serious: Yes (Hospitalization)
  Sender: FDA-Public Use
  Company Number: PHHY2012BR044747

PATIENT
  Sex: Female

DRUGS (1)
  1. AMLODOPINE BESYLATE AND VALSARTAN [Suspect]
     Indication: HYPERTENSION
     Dosage: 1 DF (160 MG VALS AND 10 MG AMLO), IN MORNING

REACTIONS (11)
  - MUSCULAR WEAKNESS [None]
  - VISUAL IMPAIRMENT [None]
  - MALAISE [None]
  - ORAL DISCOMFORT [None]
  - HEADACHE [None]
  - VISION BLURRED [None]
  - BLOOD PRESSURE INCREASED [None]
  - CEREBROVASCULAR ACCIDENT [None]
  - HEMIPARESIS [None]
  - LIMB DISCOMFORT [None]
  - DIZZINESS [None]
